FAERS Safety Report 17429087 (Version 1)
Quarter: 2020Q1

REPORT INFORMATION
  Report Type: Spontaneous
  Country: FR (occurrence: FR)
  Receive Date: 20200217
  Receipt Date: 20200217
  Transmission Date: 20200409
  Serious: Yes (Other)
  Sender: FDA-Public Use
  Company Number: FR-US-PROVELL PHARMACEUTICALS LLC-8205239

PATIENT
  Age: 43 Year
  Sex: Female
  Weight: 56 kg

DRUGS (2)
  1. LEVOTHYROX 25 NF [Suspect]
     Active Substance: LEVOTHYROXINE SODIUM
     Indication: AUTOIMMUNE THYROIDITIS
     Dosage: LEVOTHYROX NF 125 PLUS HALF 25 (UNSPECIFIED UNITS)
     Route: 048
     Dates: start: 201703, end: 201708
  2. LEVOTHYROX 125 NF [Suspect]
     Active Substance: LEVOTHYROXINE SODIUM
     Indication: AUTOIMMUNE THYROIDITIS
     Dosage: LEVOTHYROX NF 125 PLUS HALF 25 (UNSPECIFIED UNITS)
     Route: 048
     Dates: start: 201703, end: 201708

REACTIONS (24)
  - Irritability [Not Recovered/Not Resolved]
  - Alopecia [Recovered/Resolved]
  - Back pain [Not Recovered/Not Resolved]
  - Eye pain [Not Recovered/Not Resolved]
  - Headache [Not Recovered/Not Resolved]
  - Muscle spasms [Unknown]
  - Osteoarthritis [Recovering/Resolving]
  - Dizziness [Not Recovered/Not Resolved]
  - Blood thyroid stimulating hormone increased [Recovering/Resolving]
  - Memory impairment [Recovering/Resolving]
  - Bone pain [Recovering/Resolving]
  - Muscle disorder [Not Recovered/Not Resolved]
  - Fatigue [Unknown]
  - Allodynia [Unknown]
  - Asthenia [Not Recovered/Not Resolved]
  - Burning sensation [Unknown]
  - Myalgia [Unknown]
  - Amnesia [Unknown]
  - Vertigo [Unknown]
  - Insomnia [Unknown]
  - Depression [Not Recovered/Not Resolved]
  - Nausea [Not Recovered/Not Resolved]
  - Depressed mood [Unknown]
  - Muscular weakness [Unknown]

NARRATIVE: CASE EVENT DATE: 201704
